FAERS Safety Report 5017772-8 (Version None)
Quarter: 2006Q2

REPORT INFORMATION
  Report Type: 
  Country: None (occurrence: None)
  Receive Date: 20060530
  Receipt Date: 20050516
  Transmission Date: 20061013
  Serious: Yes (Other)
  Sender: FDA-Public Use
  Company Number: 2005076456

PATIENT
  Age: 57 Year
  Sex: Female

DRUGS (3)
  1. LYRICA [Suspect]
     Indication: NEURALGIA
     Dosage: 150 MG (75 MG, 2 IN 1 D), ORAL
     Route: 048
     Dates: start: 20050426, end: 20050505
  2. AMITRIPTYLINE HCL [Concomitant]
  3. LODINE [Concomitant]

REACTIONS (2)
  - ABDOMINAL DISTENSION [None]
  - GENERALISED OEDEMA [None]
